FAERS Safety Report 14636159 (Version 1)
Quarter: 2018Q1

REPORT INFORMATION
  Report Type: Not Available
  Country: US (occurrence: US)
  Receive Date: 20180314
  Receipt Date: 20180314
  Transmission Date: 20180509
  Serious: No
  Sender: FDA-Public Use
  Company Number: US-FOUNDATIONCONSUMERHC-2018-US-000930

PATIENT
  Age: 27 Year
  Sex: Female
  Weight: 56.7 kg

DRUGS (9)
  1. MAGNESIUM [Concomitant]
     Active Substance: MAGNESIUM
  2. ZINC. [Concomitant]
     Active Substance: ZINC
  3. MULTIVITAMIN [Concomitant]
     Active Substance: VITAMINS
  4. OMEGA 3 [Concomitant]
     Active Substance: OMEGA-3 FATTY ACIDS
  5. MINEREX [Concomitant]
  6. PLAN B ONE-STEP [Suspect]
     Active Substance: LEVONORGESTREL
     Dosage: 1 TAB PO
     Route: 048
     Dates: start: 20180106, end: 20180106
  7. BIOTIN [Concomitant]
     Active Substance: BIOTIN
  8. BLACKSEED OIL [Concomitant]
  9. VITAMIN D [Concomitant]
     Active Substance: CHOLECALCIFEROL

REACTIONS (3)
  - Menstruation delayed [Unknown]
  - Nausea [Unknown]
  - Mood swings [Unknown]

NARRATIVE: CASE EVENT DATE: 20180107
